FAERS Safety Report 6428203-5 (Version None)
Quarter: 2009Q4

REPORT INFORMATION
  Report Type: 
  Country: None (occurrence: None)
  Receive Date: 20091105
  Receipt Date: 20091028
  Transmission Date: 20100525
  Serious: Yes (Hospitalization)
  Sender: FDA-Public Use
  Company Number: CH-SANOFI-SYNTHELABO-A01200911160

PATIENT
  Age: 76 Year
  Sex: Male
  Weight: 79 kg

DRUGS (3)
  1. ASPIRIN [Concomitant]
     Indication: CEREBRAL INFARCTION
     Route: 048
     Dates: start: 20090727, end: 20090816
  2. ATORVASTATIN CALCIUM [Suspect]
     Indication: DRUG USE FOR UNKNOWN INDICATION
     Route: 048
     Dates: end: 20090824
  3. PLAVIX [Suspect]
     Indication: CEREBRAL INFARCTION
     Route: 048
     Dates: start: 20090727, end: 20090810

REACTIONS (8)
  - ARTHRALGIA [None]
  - CHOLESTASIS [None]
  - CONJUNCTIVITIS [None]
  - HAEMATOMA [None]
  - OEDEMA PERIPHERAL [None]
  - PYREXIA [None]
  - RASH [None]
  - VASCULITIS [None]
